FAERS Safety Report 5106262-X (Version None)
Quarter: 2006Q3

REPORT INFORMATION
  Report Type: 
  Country: None (occurrence: None)
  Receive Date: 20060912
  Receipt Date: 20060825
  Transmission Date: 20061208
  Serious: Yes (Hospitalization, Other)
  Sender: FDA-Public Use
  Company Number: 2006107324

PATIENT
  Age: 66 Year
  Sex: Male

DRUGS (5)
  1. NEURONTIN [Suspect]
     Indication: NEURALGIA
  2. LYRICA [Suspect]
     Indication: NEURALGIA
     Dosage: 150 MG (75 MG, 2 IN 1 D)
     Dates: start: 20060726
  3. INSULIN (INSULIN) [Concomitant]
  4. MORPHINE SULFATE [Concomitant]
  5. FENTANYL [Concomitant]

REACTIONS (1)
  - PRURITUS [None]
